FAERS Safety Report 14818624 (Version 1)
Quarter: 2018Q2

REPORT INFORMATION
  Report Type: Report from Study
  Country: ES (occurrence: ES)
  Receive Date: 20180427
  Receipt Date: 20180427
  Transmission Date: 20180711
  Serious: Yes (Other)
  Sender: FDA-Public Use
  Company Number: ES-ROCHE-2114525

PATIENT

DRUGS (9)
  1. ERLOTINIB [Suspect]
     Active Substance: ERLOTINIB
     Indication: NEOPLASM MALIGNANT
     Route: 048
  2. CAPECITABINE. [Interacting]
     Active Substance: CAPECITABINE
     Indication: NEOPLASM MALIGNANT
     Route: 048
  3. SORAFENIB [Interacting]
     Active Substance: SORAFENIB
     Indication: NEOPLASM MALIGNANT
     Route: 048
  4. ABIRATERONE [Interacting]
     Active Substance: ABIRATERONE
     Indication: NEOPLASM MALIGNANT
     Route: 048
  5. TEMOZOLOMIDE. [Interacting]
     Active Substance: TEMOZOLOMIDE
     Indication: NEOPLASM MALIGNANT
     Route: 048
  6. CRIZOTINIB [Interacting]
     Active Substance: CRIZOTINIB
     Indication: NEOPLASM MALIGNANT
     Route: 048
  7. IMATINIB [Interacting]
     Active Substance: IMATINIB
     Indication: NEOPLASM MALIGNANT
     Route: 048
  8. EVEROLIMUS. [Interacting]
     Active Substance: EVEROLIMUS
     Indication: NEOPLASM MALIGNANT
     Route: 048
  9. SUNITINIB [Interacting]
     Active Substance: SUNITINIB
     Indication: NEOPLASM MALIGNANT
     Route: 048

REACTIONS (2)
  - Drug interaction [Unknown]
  - Electrocardiogram QT prolonged [Unknown]
